FAERS Safety Report 4686720-2 (Version None)
Quarter: 2005Q2

REPORT INFORMATION
  Report Type: 
  Country: None (occurrence: None)
  Receive Date: 20050608
  Receipt Date: 20050526
  Transmission Date: 20051028
  Serious: Yes (Death, Life-Threatening)
  Sender: FDA-Public Use
  Company Number: 214868

PATIENT
  Age: 71 Year
  Sex: Female
  Weight: 40 kg

DRUGS (2)
  1. RITUXAN [Suspect]
     Indication: NON-HODGKIN'S LYMPHOMA
     Dosage: 470 MG, IV DRIP
     Route: 041
     Dates: start: 20040908, end: 20040929
  2. HYDROCORTISONE SODIUM SUCCINATE [Suspect]
     Dosage: 100 MG, INTRAVENOUS
     Route: 042
     Dates: start: 20040908, end: 20040927

REACTIONS (3)
  - CYTOMEGALOVIRUS INFECTION [None]
  - PNEUMOCYSTIS JIROVECI PNEUMONIA [None]
  - RESPIRATORY FAILURE [None]
